FAERS Safety Report 23738386 (Version 1)
Quarter: 2024Q2

REPORT INFORMATION
  Report Type: Spontaneous
  Country: EU (occurrence: EU)
  Receive Date: 20240412
  Receipt Date: 20240412
  Transmission Date: 20240715
  Serious: Yes (Other)
  Sender: FDA-Public Use
  Company Number: EU-SEPTODONT-2024018533

PATIENT
  Weight: 64 kg

DRUGS (1)
  1. ARTICAINE\EPINEPHRINE [Suspect]
     Active Substance: ARTICAINE\EPINEPHRINE
     Indication: Dental local anaesthesia
     Dosage: 1 AMPOULE
     Route: 004
     Dates: start: 20240403, end: 20240403

REACTIONS (10)
  - Loss of consciousness [Recovered/Resolved]
  - Malaise [Unknown]
  - Aphonia [Unknown]
  - Asthenia [Unknown]
  - Feeling abnormal [Unknown]
  - Headache [Recovered/Resolved]
  - Abdominal pain [Unknown]
  - Nausea [Unknown]
  - Vomiting [Unknown]
  - Dizziness [Recovering/Resolving]

NARRATIVE: CASE EVENT DATE: 20240403
